FAERS Safety Report 9893301 (Version 1)
Quarter: 2014Q1

REPORT INFORMATION
  Report Type: Spontaneous
  Country: US (occurrence: US)
  Receive Date: 20140213
  Receipt Date: 20140213
  Transmission Date: 20141002
  Serious: No
  Sender: FDA-Public Use
  Company Number: US-JNJFOC-20140118670

PATIENT
  Age: 27 Year
  Sex: Female
  Weight: 48.54 kg

DRUGS (6)
  1. DURAGESIC [Suspect]
     Indication: MUSCULOSKELETAL PAIN
     Route: 062
     Dates: start: 20131101
  2. DURAGESIC [Suspect]
     Indication: OSTEONECROSIS
     Route: 062
     Dates: start: 20131101
  3. NORCO [Concomitant]
     Indication: ARTHRALGIA
     Dosage: EVRY 4-6 HOURS
     Route: 048
     Dates: start: 20130520
  4. NORCO [Concomitant]
     Indication: ARTHRALGIA
     Dosage: EVRY 4-6 HOURS
     Route: 048
     Dates: start: 20130520
  5. NORCO [Concomitant]
     Indication: MUSCULOSKELETAL PAIN
     Dosage: EVRY 4-6 HOURS
     Route: 048
     Dates: start: 20130520
  6. KEPPRA [Concomitant]
     Indication: CONVULSION
     Route: 048
     Dates: start: 2009

REACTIONS (6)
  - Drug dose omission [Not Recovered/Not Resolved]
  - Wrong technique in drug usage process [Unknown]
  - Wrong technique in drug usage process [Unknown]
  - Product quality issue [Not Recovered/Not Resolved]
  - Product quality issue [Unknown]
  - Product quality issue [Unknown]
